FAERS Safety Report 8818500 (Version 2)
Quarter: 2013Q1

REPORT INFORMATION
  Report Type: Spontaneous
  Country: BE (occurrence: BE)
  Receive Date: 20121001
  Receipt Date: 20130307
  Transmission Date: 20140127
  Serious: Yes (Hospitalization, Other)
  Sender: FDA-Public Use
  Company Number: BE-BRISTOL-MYERS SQUIBB COMPANY-16984122

PATIENT
  Sex: Female

DRUGS (5)
  1. ABILIFY [Suspect]
     Indication: SCHIZOAFFECTIVE DISORDER
     Route: 048
  2. GRAPEFRUIT JUICE [Interacting]
  3. PRIADEL [Suspect]
  4. DEPAKINE [Suspect]
  5. TEMESTA [Suspect]

REACTIONS (3)
  - Psychotic disorder [Recovered/Resolved]
  - Mania [Recovered/Resolved]
  - Food interaction [Unknown]
